FAERS Safety Report 5135567-1 (Version None)
Quarter: 2006Q4

REPORT INFORMATION
  Report Type: 
  Country: None (occurrence: None)
  Receive Date: 20061026
  Receipt Date: 20061025
  Transmission Date: 20070319
  Serious: Yes (Hospitalization)
  Sender: FDA-Public Use
  Company Number: CN-BRISTOL-MYERS SQUIBB COMPANY-13555248

PATIENT
  Age: 80 Year
  Sex: Male

DRUGS (1)
  1. MONOPRIL [Suspect]
     Indication: HYPERTENSION
     Route: 048
     Dates: start: 20061023, end: 20061023

REACTIONS (1)
  - PALLOR [None]
